FAERS Safety Report 10451116 (Version 1)
Quarter: 2014Q3

REPORT INFORMATION
  Report Type: Spontaneous
  Country: US (occurrence: US)
  Receive Date: 20140912
  Receipt Date: 20140912
  Transmission Date: 20150326
  Serious: Yes (Other)
  Sender: FDA-Public Use
  Company Number: ALCN2014US005090

PATIENT
  Age: 67 Year
  Sex: Female
  Weight: 58.5 kg

DRUGS (5)
  1. DUREZOL [Suspect]
     Active Substance: DIFLUPREDNATE
     Indication: CATARACT OPERATION
     Dosage: 1 GTT, QID
     Route: 047
     Dates: start: 20140820, end: 20140821
  2. BESIVANCE//BESIFLOXACIN [Concomitant]
     Indication: CATARACT OPERATION
     Dosage: UNK
     Route: 047
     Dates: start: 20140818
  3. NEVANAC [Suspect]
     Active Substance: NEPAFENAC
     Indication: CATARACT OPERATION
     Dosage: UNK
     Route: 047
     Dates: start: 20140818
  4. DUREZOL [Suspect]
     Active Substance: DIFLUPREDNATE
     Dosage: 1 GTT, BID
     Route: 047
     Dates: start: 20140821
  5. XALATAN [Concomitant]
     Active Substance: LATANOPROST
     Dosage: UNK

REACTIONS (3)
  - Intraocular pressure increased [Unknown]
  - Eye inflammation [Unknown]
  - Hypopyon [Unknown]

NARRATIVE: CASE EVENT DATE: 20140822
